FAERS Safety Report 7301118-6 (Version None)
Quarter: 2011Q1

REPORT INFORMATION
  Report Type: 
  Country: None (occurrence: None)
  Receive Date: 20110218
  Receipt Date: 20110208
  Transmission Date: 20110831
  Serious: Yes (Other)
  Sender: FDA-Public Use
  Company Number: JP-BRISTOL-MYERS SQUIBB COMPANY-15556327

PATIENT
  Age: 60 Year
  Sex: Male

DRUGS (2)
  1. BRIPLATIN [Suspect]
     Indication: HYPOPHARYNGEAL CANCER
     Route: 041
     Dates: start: 20070130
  2. FLUOROURACIL [Suspect]
     Indication: HYPOPHARYNGEAL CANCER
     Route: 041
     Dates: start: 20070130

REACTIONS (5)
  - MULTI-ORGAN FAILURE [None]
  - BACTERIAL TRANSLOCATION [None]
  - SEPTIC SHOCK [None]
  - ILEUS PARALYTIC [None]
  - DISSEMINATED INTRAVASCULAR COAGULATION [None]
